FAERS Safety Report 9157972 (Version 1)
Quarter: 2013Q1

REPORT INFORMATION
  Report Type: Spontaneous
  Country: FR (occurrence: FR)
  Receive Date: 20130312
  Receipt Date: 20130312
  Transmission Date: 20140127
  Serious: Yes (Hospitalization)
  Sender: FDA-Public Use
  Company Number: FR-ROCHE-1166925

PATIENT
  Age: 83 Year
  Sex: Male

DRUGS (2)
  1. ROCEPHINE [Suspect]
     Indication: LUNG INFECTION
     Route: 051
     Dates: start: 20120920, end: 20121004
  2. SINTROM [Suspect]
     Indication: PRODUCT USED FOR UNKNOWN INDICATION
     Route: 048
     Dates: end: 20121005

REACTIONS (2)
  - Anti factor V antibody positive [Recovered/Resolved]
  - Activated partial thromboplastin time prolonged [Recovered/Resolved]
